FAERS Safety Report 6540228-8 (Version None)
Quarter: 2010Q1

REPORT INFORMATION
  Report Type: 
  Country: None (occurrence: None)
  Receive Date: 20100115
  Receipt Date: 20100107
  Transmission Date: 20100710
  Serious: Yes (Other)
  Sender: FDA-Public Use
  Company Number: US-ABBOTT-10P-163-0618825-00

PATIENT
  Sex: Female
  Weight: 67.192 kg

DRUGS (10)
  1. NIASPAN [Suspect]
     Indication: BLOOD CHOLESTEROL INCREASED
     Route: 048
     Dates: start: 20080901, end: 20081201
  2. NIASPAN [Suspect]
     Indication: LIPIDS INCREASED
     Dates: start: 20081201, end: 20091116
  3. FLOVENT [Concomitant]
     Indication: DRUG USE FOR UNKNOWN INDICATION
     Route: 055
  4. RESCUE AIR [Concomitant]
     Indication: DRUG USE FOR UNKNOWN INDICATION
  5. LEVOTHYROXINE SODIUM [Concomitant]
     Indication: DRUG USE FOR UNKNOWN INDICATION
  6. PANAPRAZOL [Concomitant]
     Indication: DRUG USE FOR UNKNOWN INDICATION
  7. MICARDIS [Concomitant]
     Indication: DRUG USE FOR UNKNOWN INDICATION
  8. ESTRASE VAG CREAME [Concomitant]
     Indication: DRUG USE FOR UNKNOWN INDICATION
     Route: 067
  9. HYDROCODONE [Concomitant]
     Indication: PAIN
     Dosage: 5/500 AS NEEDED
  10. DYCYCLINIUME [Concomitant]
     Indication: DRUG USE FOR UNKNOWN INDICATION

REACTIONS (6)
  - ABDOMINAL PAIN [None]
  - BLOOD CHOLESTEROL INCREASED [None]
  - CHOKING [None]
  - COUGH [None]
  - POLYP [None]
  - WEIGHT INCREASED [None]
